FAERS Safety Report 10042089 (Version 1)
Quarter: 2014Q1

REPORT INFORMATION
  Report Type: Spontaneous
  Country: GB (occurrence: GB)
  Receive Date: 20140327
  Receipt Date: 20140327
  Transmission Date: 20141002
  Serious: Yes (Life-Threatening, Hospitalization)
  Sender: FDA-Public Use
  Company Number: GB-TEVA-469523ISR

PATIENT
  Age: 69 Year
  Sex: Male
  Weight: 68 kg

DRUGS (23)
  1. LIPOSOMAL DOXORUBICIN [Suspect]
     Indication: B-CELL LYMPHOMA
     Dosage: DOSAGE FORM: LIPOSOME INJECTION
     Route: 042
     Dates: start: 20131011
  2. LIPOSOMAL DOXORUBICIN [Suspect]
     Indication: B-CELL LYMPHOMA
     Dosage: DOSAGE FORM: LIPOSOME INJECTION
     Route: 042
     Dates: start: 20131106
  3. LIPOSOMAL DOXORUBICIN [Suspect]
     Indication: B-CELL LYMPHOMA
     Dosage: DOSAGE FORM: LIPOSOME INJECTION
     Route: 042
     Dates: start: 20130917, end: 20131106
  4. VINCRISTINE [Suspect]
     Indication: B-CELL LYMPHOMA
     Dosage: DOSAGE FORM : INJECTION
     Route: 065
     Dates: start: 20130917, end: 20131106
  5. VINCRISTINE [Suspect]
     Indication: B-CELL LYMPHOMA
     Dosage: DOSAGE FORM: INJECTION
     Route: 065
     Dates: start: 20131106
  6. VINCRISTINE [Suspect]
     Indication: B-CELL LYMPHOMA
     Dosage: DOSAGE FORM: INJECTION
     Route: 065
     Dates: start: 20131011
  7. PREDNISOLONE [Suspect]
     Indication: B-CELL LYMPHOMA
     Dosage: DOSAGE FORM: TABLET
     Route: 065
     Dates: start: 20131015
  8. PREDNISOLONE [Suspect]
     Indication: B-CELL LYMPHOMA
     Dosage: DOSAGE FORM: TABLET
     Route: 065
     Dates: start: 20131110
  9. PREDNISOLONE [Suspect]
     Indication: B-CELL LYMPHOMA
     Dosage: DOSAGE FORM: TABLET
     Route: 065
     Dates: start: 20130917, end: 20131110
  10. RITUXIMAB [Suspect]
     Indication: B-CELL LYMPHOMA
     Dosage: DOSAGE FORM: SOLUTION FOR INJECTION
     Route: 065
     Dates: start: 20131106
  11. RITUXIMAB [Suspect]
     Indication: B-CELL LYMPHOMA
     Dosage: DOSAGE FORM: SOLUTION FOR INJECTION
     Route: 065
     Dates: start: 20130916, end: 20131106
  12. RITUXIMAB [Suspect]
     Indication: B-CELL LYMPHOMA
     Dosage: DOSAGE FORM: SOLUTION FOR INJECTION
     Route: 065
     Dates: start: 20131011
  13. CYCLOPHOSPHAMIDE [Suspect]
     Indication: B-CELL LYMPHOMA
     Dosage: DOSAGE FORM: SOLUTION FOR INJECTION
     Route: 065
     Dates: start: 20130917, end: 20131106
  14. CYCLOPHOSPHAMIDE [Suspect]
     Indication: B-CELL LYMPHOMA
     Dosage: DOSAGE FORM: SOLUTION FOR INJECTION
     Route: 065
     Dates: start: 20131011
  15. CYCLOPHOSPHAMIDE [Suspect]
     Indication: B-CELL LYMPHOMA
     Dosage: DOSAGE FORM: SOLUTION FOR INJECTION
     Route: 065
     Dates: start: 20131106
  16. VELCADE [Suspect]
     Indication: B-CELL LYMPHOMA
     Dosage: DOSAGE FORM: INJECTION
     Route: 065
     Dates: start: 20131011, end: 20131113
  17. CHLORPHENAMINE [Concomitant]
     Dosage: DOSAGE FORM: UNSPECIFIED
     Route: 042
     Dates: start: 20130916, end: 20130916
  18. DOMPERIDONE [Concomitant]
     Indication: PRODUCT USED FOR UNKNOWN INDICATION
     Dosage: DOSAGE FORM: UNSPECIFIED
     Route: 065
     Dates: start: 20131013, end: 20131015
  19. HYDROCORTISONE [Concomitant]
     Dosage: DOSAGE FORM: UNSPECIFIED
     Route: 042
     Dates: start: 20130916, end: 20130916
  20. LENOGRASTIM [Concomitant]
     Indication: PRODUCT USED FOR UNKNOWN INDICATION
     Dosage: DOSAGE FORM: UNSPECIFIED
     Route: 065
     Dates: start: 20131018
  21. OMEPRAZOLE [Concomitant]
     Indication: PRODUCT USED FOR UNKNOWN INDICATION
     Dosage: DOSAGE FORM: UNSPECIFIED
     Route: 065
     Dates: start: 20131011, end: 20131015
  22. ONDANSETRON [Concomitant]
     Indication: PRODUCT USED FOR UNKNOWN INDICATION
     Dosage: DOSAGE FORM: UNSPECIFIED
     Route: 065
     Dates: start: 20131011, end: 20131018
  23. PARACETAMOL [Concomitant]
     Indication: PRODUCT USED FOR UNKNOWN INDICATION
     Dosage: DOSAGE FORM: UNSPECIFIED
     Route: 048
     Dates: start: 20130916, end: 20130916

REACTIONS (6)
  - Neutropenic sepsis [Recovered/Resolved]
  - Anaemia [Not Recovered/Not Resolved]
  - Infection [Not Recovered/Not Resolved]
  - Hypophosphataemia [Recovered/Resolved]
  - Pyrexia [Recovered/Resolved]
  - Malaise [Recovered/Resolved]
